FAERS Safety Report 17927934 (Version 1)
Quarter: 2020Q2

REPORT INFORMATION
  Report Type: Spontaneous
  Country: US (occurrence: US)
  Receive Date: 20200623
  Receipt Date: 20200623
  Transmission Date: 20200714
  Serious: No
  Sender: FDA-Public Use
  Company Number: US-DRREDDYS-USA/USA/20/0124156

PATIENT
  Age: 25 Year
  Sex: Female

DRUGS (3)
  1. OLANZAPINE FILM-COATED TABLET [Suspect]
     Active Substance: OLANZAPINE
     Indication: PSYCHOTIC DISORDER
     Route: 048
  2. LORAZEPAM INJECTION USP, 2 MG/ML AND 4 MG/ML [Concomitant]
     Active Substance: LORAZEPAM
     Indication: PSYCHOTIC DISORDER
     Route: 065
  3. IBUPROFEN. [Concomitant]
     Active Substance: IBUPROFEN
     Indication: DYSMENORRHOEA
     Route: 065

REACTIONS (2)
  - Oedema peripheral [Unknown]
  - Weight increased [Unknown]
